FAERS Safety Report 5013961-7 (Version None)
Quarter: 2006Q2

REPORT INFORMATION
  Report Type: 
  Country: None (occurrence: None)
  Receive Date: 20060526
  Receipt Date: 20060526
  Transmission Date: 20061013
  Serious: Yes (Other)
  Sender: FDA-Public Use
  Company Number: None

PATIENT
  Sex: Male
  Weight: 58.9676 kg

DRUGS (1)
  1. LARIAM [Suspect]
     Indication: MALARIA PROPHYLAXIS
     Dosage: ONCE A WEEK   PO
     Route: 048
     Dates: start: 19920706, end: 19921010

REACTIONS (10)
  - ANXIETY [None]
  - DEPRESSION [None]
  - FEAR [None]
  - FEELING ABNORMAL [None]
  - MALAISE [None]
  - MENTAL DISORDER [None]
  - MENTAL IMPAIRMENT [None]
  - NIGHTMARE [None]
  - SUICIDAL IDEATION [None]
  - THINKING ABNORMAL [None]
